FAERS Safety Report 8600978-6 (Version None)
Quarter: 2012Q3

REPORT INFORMATION
  Report Type: 
  Country: None (occurrence: None)
  Receive Date: 20120805
  Receipt Date: 20120723
  Transmission Date: 20120928
  Serious: Yes (Hospitalization, Other)
  Sender: FDA-Public Use
  Company Number: JPI-P-005727

PATIENT
  Age: 58 Year
  Sex: Female
  Weight: 81.1939 kg

DRUGS (13)
  1. VERAPAMIL [Concomitant]
  2. VITAMIN D [Concomitant]
  3. MONTELUKAST SODIUM [Concomitant]
  4. BUPROPION HYDROCHLORIDE [Concomitant]
  5. AMPHETAMINE/DEXTROAMPHETAMINE MIXED SALTS [Concomitant]
  6. XYREM [Suspect]
     Indication: NARCOLEPSY
     Dosage: 6 GM (3 GM,2 IN 1 D),ORAL ; (3.0 GM 1ST DOSE/2.25 GM 2ND DOSE),ORAL
     Route: 048
     Dates: start: 20071201, end: 20081201
  7. XYREM [Suspect]
     Indication: SLEEP APNOEA SYNDROME
     Dosage: 6 GM (3 GM,2 IN 1 D),ORAL ; (3.0 GM 1ST DOSE/2.25 GM 2ND DOSE),ORAL
     Route: 048
     Dates: start: 20071201, end: 20081201
  8. VALSARTAN [Concomitant]
  9. VENLAFAXINE HYDROCHOLRIDE [Concomitant]
  10. VENLAFAXINE HYDROCHLORIDE XR [Concomitant]
  11. TRIAMTERENE AND HYDROCHLOROTHIAZIDE [Concomitant]
  12. HYDROCHLOROTHIAZIDE [Concomitant]
  13. MODAFINIL [Concomitant]

REACTIONS (8)
  - EXPOSURE TO TOXIC AGENT [None]
  - DRUG ADMINISTRATION ERROR [None]
  - OXYGEN SATURATION DECREASED [None]
  - SOMNOLENCE [None]
  - JOINT SWELLING [None]
  - NASOPHARYNGITIS [None]
  - BLOOD POTASSIUM DECREASED [None]
  - OEDEMA PERIPHERAL [None]
